FAERS Safety Report 19445609 (Version 1)
Quarter: 2021Q2

REPORT INFORMATION
  Report Type: Spontaneous
  Country: US (occurrence: US)
  Receive Date: 20210622
  Receipt Date: 20210622
  Transmission Date: 20210717
  Serious: Yes (Other)
  Sender: FDA-Public Use
  Company Number: US-LUPIN PHARMACEUTICALS INC.-2021-09743

PATIENT
  Age: 68 Year
  Sex: Female

DRUGS (7)
  1. DEXTROSE. [Suspect]
     Active Substance: DEXTROSE
     Indication: COVID-19
     Dosage: UNK
     Route: 065
  2. INSULIN [Suspect]
     Active Substance: INSULIN NOS
     Indication: COVID-19
     Dosage: UNK
     Route: 065
  3. SODIUM BICARBONATE. [Suspect]
     Active Substance: SODIUM BICARBONATE
     Indication: COVID-19
     Dosage: UNK
     Route: 065
  4. HEPARIN [Concomitant]
     Active Substance: HEPARIN SODIUM
     Indication: ATRIAL THROMBOSIS
     Dosage: UNK (ROUTE: INFUSION)
     Route: 065
  5. NOREPINEPHRINE. [Suspect]
     Active Substance: NOREPINEPHRINE
     Indication: COVID-19
     Dosage: UNK
     Route: 042
  6. HYDROXYCHLOROQUINE [Suspect]
     Active Substance: HYDROXYCHLOROQUINE
     Indication: COVID-19
     Dosage: UNK
     Route: 065
  7. CALCIUM GLUCONATE. [Suspect]
     Active Substance: CALCIUM GLUCONATE
     Indication: COVID-19
     Dosage: UNK
     Route: 065

REACTIONS (1)
  - Off label use [Unknown]
